FAERS Safety Report 7008589-3 (Version None)
Quarter: 2010Q3

REPORT INFORMATION
  Report Type: 
  Country: None (occurrence: None)
  Receive Date: 20100922
  Receipt Date: 20100913
  Transmission Date: 20110219
  Serious: Yes (Hospitalization)
  Sender: FDA-Public Use
  Company Number: US-ABBOTT-10P-163-0671066-00

PATIENT
  Sex: Female
  Weight: 132.57 kg

DRUGS (1)
  1. HUMIRA [Suspect]
     Indication: PSORIASIS
     Dates: start: 20100721

REACTIONS (3)
  - CELLULITIS [None]
  - INFECTION [None]
  - JOINT INJURY [None]
